FAERS Safety Report 6710529-9 (Version None)
Quarter: 2010Q2

REPORT INFORMATION
  Report Type: 
  Country: None (occurrence: None)
  Receive Date: 20100504
  Receipt Date: 20100422
  Transmission Date: 20101027
  Serious: Yes (Hospitalization)
  Sender: FDA-Public Use
  Company Number: PHHY2010FR26151

PATIENT
  Sex: Male
  Weight: 65 kg

DRUGS (3)
  1. MYCOPHENOLIC ACID [Suspect]
     Indication: RENAL TRANSPLANT
     Dosage: 1440 MG/ DAY
     Route: 048
     Dates: start: 20071118
  2. MYCOPHENOLIC ACID [Suspect]
     Dosage: 720 MG/ DAY
     Route: 048
  3. EVEROLIMUS [Concomitant]
     Dosage: 2.50 MG/DAY

REACTIONS (1)
  - RENAL FAILURE ACUTE [None]
